FAERS Safety Report 5491368-6 (Version None)
Quarter: 2007Q4

REPORT INFORMATION
  Report Type: 
  Country: None (occurrence: None)
  Receive Date: 20071017
  Receipt Date: 20071003
  Transmission Date: 20080405
  Serious: Yes (Other)
  Sender: FDA-Public Use
  Company Number: 02100-JPN-07-0604

PATIENT
  Age: 71 Year
  Sex: Male

DRUGS (7)
  1. CILOSTAZOL [Suspect]
     Indication: ARTERIOSCLEROSIS OBLITERANS
     Dosage: 100 MG ORAL
     Route: 048
     Dates: start: 20070926, end: 20070929
  2. AMLODIPINE BESYLATE [Concomitant]
  3. DILTIAZEM [Concomitant]
  4. GLICLAZIDE [Concomitant]
  5. VOGLIBOSE [Concomitant]
  6. PIOGLITAZONE HCL [Concomitant]
  7. PRE-MEDICATION: BERAPROST SODIUM [Concomitant]

REACTIONS (1)
  - CARDIAC FAILURE [None]
